FAERS Safety Report 9017291 (Version 1)
Quarter: 2013Q1

REPORT INFORMATION
  Report Type: Spontaneous
  Country: US (occurrence: US)
  Receive Date: 20130117
  Receipt Date: 20130117
  Transmission Date: 20140127
  Serious: No
  Sender: FDA-Public Use
  Company Number: US-PFIZER INC-2013015061

PATIENT
  Age: 50 Year
  Sex: Male

DRUGS (4)
  1. AZITHROMYCIN [Suspect]
     Indication: MALAISE
     Dosage: UNK
  2. AZITHROMYCIN [Suspect]
     Indication: BRONCHITIS
  3. ALLEGRA [Suspect]
     Dosage: UNK
  4. ZYPREXA [Concomitant]
     Dosage: UNK

REACTIONS (4)
  - Sedation [Unknown]
  - Somnolence [Unknown]
  - Urinary incontinence [Unknown]
  - Dysstasia [Unknown]
